FAERS Safety Report 19269704 (Version 6)
Quarter: 2021Q3

REPORT INFORMATION
  Report Type: Other
  Country: GB (occurrence: GB)
  Receive Date: 20210518
  Receipt Date: 20210715
  Transmission Date: 20211014
  Serious: Yes (Death, Congenital Anomaly, Other)
  Sender: FDA-Public Use
  Company Number: GB-MACLEODS PHARMA UK LTD-MAC2021031122

PATIENT

DRUGS (8)
  1. EMTRICITABINE [Suspect]
     Active Substance: EMTRICITABINE
     Indication: PRODUCT USED FOR UNKNOWN INDICATION
     Dosage: 1 DOSAGE FORM, QD, 1 COURSE, DURING SECOND TRIMESTER OF PREGNANCY, START DATE: 01?AUG?2020
     Route: 064
  2. DESCOVY [Suspect]
     Active Substance: EMTRICITABINE\TENOFOVIR ALAFENAMIDE FUMARATE
     Indication: PRODUCT USED FOR UNKNOWN INDICATION
     Dosage: 1 DOSAGE FORM, QD, 1 COURSE, PRIOR TO CONCEPTION, STOP DATE: 01?JUN?2020, MATERNAL DOSE
     Route: 064
  3. TENOFOVIR [Suspect]
     Active Substance: TENOFOVIR
     Indication: PRODUCT USED FOR UNKNOWN INDICATION
     Dosage: 1 DOSAGE FORM, QD, 1 COURSE, DURING SECOND TRIMESTER OF PREGNANCY. START DATE 01?AUG?2020
     Route: 064
  4. REYATAZ [Suspect]
     Active Substance: ATAZANAVIR SULFATE
     Indication: PRODUCT USED FOR UNKNOWN INDICATION
     Dosage: 1 DOSAGE FORM, QD, 1 COURSE, DURING FIRST TRIMESTER OF PREGNANCY,  START DATE: 01?JUN?2020, STOP DAT
     Route: 064
  5. RITONAVIR. [Suspect]
     Active Substance: RITONAVIR
     Indication: PRODUCT USED FOR UNKNOWN INDICATION
     Dosage: 1 DOSAGE FORM, QD, 1 COURSE, DURING FIRST TRIMESTER OF PREGNANCY, START DATE: 01?JUN?2020, STOP DATE
     Route: 064
  6. ABACAVIR/LAMIVUDINE TABLETS [Suspect]
     Active Substance: ABACAVIR SULFATE\LAMIVUDINE
     Indication: PRODUCT USED FOR UNKNOWN INDICATION
     Dosage: 1 DOSAGE FORM, QD, 1 COURSE, DURING FIRST TRIMESTER OF PREGNANCY, MATERNAL DOSE
     Route: 064
     Dates: start: 20200601, end: 20200801
  7. TRUVADA [Suspect]
     Active Substance: EMTRICITABINE\TENOFOVIR DISOPROXIL FUMARATE
     Indication: PRODUCT USED FOR UNKNOWN INDICATION
     Dosage: 1 DOSAGE FORM, QD, 1 COURSE, DURING SECOND TRIMESTER OF PREGNANCY, MATERNAL DOSE, START DATE: 01?AUG
     Route: 064
  8. ISENTRESS [Suspect]
     Active Substance: RALTEGRAVIR POTASSIUM
     Indication: PRODUCT USED FOR UNKNOWN INDICATION
     Dosage: 1 DOSAGE FORM, QD, 1 COURSE, DURING SECOND TRIMESTER OF PREGNANCY, START DATE: 01?AUG?2020
     Route: 064

REACTIONS (5)
  - Foetal death [Fatal]
  - Hydrocephalus [Unknown]
  - Premature baby [Unknown]
  - Foetal exposure during pregnancy [Recovered/Resolved]
  - Spina bifida [Not Recovered/Not Resolved]

NARRATIVE: CASE EVENT DATE: 2020
